FAERS Safety Report 10708819 (Version 2)
Quarter: 2015Q1

REPORT INFORMATION
  Report Type: Spontaneous
  Country: US (occurrence: US)
  Receive Date: 20150113
  Receipt Date: 20150126
  Transmission Date: 20150721
  Serious: No
  Sender: FDA-Public Use
  Company Number: US-009507513-1501USA002336

PATIENT
  Age: 13 Year
  Sex: Female
  Weight: 56.69 kg

DRUGS (1)
  1. NEXPLANON [Suspect]
     Active Substance: ETONOGESTREL
     Indication: CONTRACEPTION
     Dosage: 68 MG, LEFT ARM
     Route: 059
     Dates: start: 20150107

REACTIONS (8)
  - Device dislocation [Not Recovered/Not Resolved]
  - Pain in extremity [Unknown]
  - Peripheral coldness [Unknown]
  - Peripheral swelling [Unknown]
  - Implant site pain [Unknown]
  - Pulse absent [Unknown]
  - Skin discolouration [Unknown]
  - Medical device complication [Not Recovered/Not Resolved]

NARRATIVE: CASE EVENT DATE: 201501
